FAERS Safety Report 8608213 (Version 2)
Quarter: 2013Q3

REPORT INFORMATION
  Report Type: Spontaneous
  Country: US (occurrence: US)
  Receive Date: 20120611
  Receipt Date: 20130925
  Transmission Date: 20140515
  Serious: Yes (Disabling, Other)
  Sender: FDA-Public Use
  Company Number: US-ASTRAZENECA-2012SE35168

PATIENT
  Age: 46 Year
  Sex: Male

DRUGS (11)
  1. NEXIUM [Suspect]
     Indication: GASTROOESOPHAGEAL REFLUX DISEASE
     Dosage: ONE DAILY
     Route: 048
  2. NEXIUM [Suspect]
     Indication: GASTROOESOPHAGEAL REFLUX DISEASE
     Route: 048
     Dates: start: 20061109
  3. ASPIRIN [Concomitant]
  4. INDOMETHACIN [Concomitant]
     Route: 048
  5. FLUOCINONIDE [Concomitant]
  6. ALLOPURINOL [Concomitant]
     Route: 048
  7. SIMVASTATIN [Concomitant]
     Route: 048
  8. PREVACID [Concomitant]
     Route: 048
  9. HYDROXYZINE [Concomitant]
     Route: 048
  10. CATAPRES [Concomitant]
     Route: 048
  11. LISINOPRIL [Concomitant]
     Route: 048

REACTIONS (10)
  - Arthropathy [Unknown]
  - Back disorder [Unknown]
  - Renal disorder [Unknown]
  - Neoplasm malignant [Unknown]
  - Osteoporosis [Unknown]
  - Bone density decreased [Unknown]
  - Multiple fractures [Unknown]
  - Vitamin D deficiency [Unknown]
  - Meniscus injury [Unknown]
  - Patellofemoral pain syndrome [Unknown]
